FAERS Safety Report 4295785-1 (Version None)
Quarter: 2004Q1

REPORT INFORMATION
  Report Type: 
  Country: None (occurrence: None)
  Receive Date: 20040216
  Receipt Date: 20031103
  Transmission Date: 20041129
  Serious: No
  Sender: FDA-Public Use
  Company Number: US-GLAXOSMITHKLINE-A0432613A

PATIENT
  Age: 18 Year
  Sex: Male
  Weight: 129.5 kg

DRUGS (1)
  1. LAMICTAL [Suspect]
     Indication: BIPOLAR DISORDER
     Dosage: 400MG AT NIGHT
     Route: 048

REACTIONS (4)
  - BLEPHAROSPASM [None]
  - DISORIENTATION [None]
  - TREMOR [None]
  - VISUAL DISTURBANCE [None]
